FAERS Safety Report 19008568 (Version 1)
Quarter: 2021Q1

REPORT INFORMATION
  Report Type: Spontaneous
  Country: AR (occurrence: AR)
  Receive Date: 20210315
  Receipt Date: 20210315
  Transmission Date: 20210420
  Serious: Yes (Other)
  Sender: FDA-Public Use
  Company Number: AR-AMGEN-ARGSP2021038672

PATIENT
  Age: 63 Year
  Sex: Female

DRUGS (1)
  1. ENBREL [Suspect]
     Active Substance: ETANERCEPT
     Indication: RHEUMATOID ARTHRITIS
     Dosage: 50 MG, CYCLIC (EVERY 8 DAYS)
     Route: 065
     Dates: start: 20170908

REACTIONS (6)
  - Bone fissure [Unknown]
  - Hip fracture [Unknown]
  - Accident [Unknown]
  - Gait disturbance [Unknown]
  - Off label use [Unknown]
  - Hypokinesia [Unknown]

NARRATIVE: CASE EVENT DATE: 20170908
